FAERS Safety Report 23420917 (Version 5)
Quarter: 2025Q3

REPORT INFORMATION
  Report Type: Report from Study
  Country: ZA (occurrence: ZA)
  Receive Date: 20240119
  Receipt Date: 20250814
  Transmission Date: 20251020
  Serious: Yes (Other)
  Sender: SANDOZ
  Company Number: ZA-SANDOZ-SDZ2023ZA040145

PATIENT
  Age: 49 Year
  Sex: Female
  Weight: 72 kg

DRUGS (6)
  1. ERELZI [Suspect]
     Active Substance: ETANERCEPT-SZZS
     Indication: Rheumatoid arthritis
     Dosage: 50 MG, QW
     Route: 058
     Dates: start: 20221103
  2. ERELZI [Suspect]
     Active Substance: ETANERCEPT-SZZS
     Route: 058
     Dates: start: 20230703
  3. ERELZI [Suspect]
     Active Substance: ETANERCEPT-SZZS
     Dosage: 50 MG, QW
     Route: 058
  4. CHLOROQUINE [Concomitant]
     Active Substance: CHLOROQUINE
     Indication: Product used for unknown indication
     Dosage: 200 MG, QD
     Route: 065
     Dates: start: 202003
  5. METHOTREXATE [Concomitant]
     Active Substance: METHOTREXATE
     Indication: Product used for unknown indication
     Dosage: 20 MG, QW
     Route: 065
     Dates: start: 202003, end: 202212
  6. SULFASALAZINE [Concomitant]
     Active Substance: SULFASALAZINE
     Indication: Product used for unknown indication
     Dosage: 1000 MG, BID
     Route: 065
     Dates: start: 202003, end: 202005

REACTIONS (10)
  - Rheumatoid arthritis [Unknown]
  - Eczema [Unknown]
  - Laboratory test abnormal [Unknown]
  - Feeling abnormal [Unknown]
  - Alopecia [Unknown]
  - Arthralgia [Unknown]
  - Injection site discolouration [Unknown]
  - Injection site pain [Unknown]
  - C-reactive protein increased [Not Recovered/Not Resolved]
  - Viral infection [Unknown]

NARRATIVE: CASE EVENT DATE: 20240112
